FAERS Safety Report 7486667-2 (Version None)
Quarter: 2011Q2

REPORT INFORMATION
  Report Type: 
  Country: None (occurrence: None)
  Receive Date: 20110517
  Receipt Date: 20100806
  Transmission Date: 20111010
  Serious: No
  Sender: FDA-Public Use
  Company Number: US-NOVEN-ALL1-2010-04199

PATIENT

DRUGS (4)
  1. DAYTRANA [Suspect]
     Dosage: 10 MG, 1X/DAY:QD
     Route: 062
     Dates: start: 20090101, end: 20100201
  2. DAYTRANA [Suspect]
     Dosage: 15 MG, 1X/DAY:QD
     Route: 062
     Dates: start: 20100731
  3. DAYTRANA [Suspect]
     Dosage: 20 MG, 1X/DAY:QD (MONDAY THROUGH FRIDAY)
     Route: 062
     Dates: start: 20100201, end: 20100730
  4. DAYTRANA [Suspect]
     Dosage: UNK MG, 1X/DAY:QD (1/2-20 MG. PATCH SATURDAY AND SUNDAY)
     Route: 062
     Dates: start: 20100101, end: 20100731

REACTIONS (6)
  - DECREASED APPETITE [None]
  - WEIGHT DECREASED [None]
  - PRODUCT QUALITY ISSUE [None]
  - IMPULSIVE BEHAVIOUR [None]
  - WRONG TECHNIQUE IN DRUG USAGE PROCESS [None]
  - FLAT AFFECT [None]
